FAERS Safety Report 12187199 (Version 1)
Quarter: 2016Q1

REPORT INFORMATION
  Report Type: Spontaneous
  Country: US (occurrence: US)
  Receive Date: 20160317
  Receipt Date: 20160317
  Transmission Date: 20160526
  Serious: Yes (Other)
  Sender: FDA-Public Use
  Company Number: US-ACORDA-ACO_122294_2016

PATIENT
  Sex: Male

DRUGS (1)
  1. AMPYRA [Suspect]
     Active Substance: DALFAMPRIDINE
     Indication: PRODUCT USED FOR UNKNOWN INDICATION
     Dosage: UNK
     Route: 065

REACTIONS (20)
  - Hyperkeratosis [Unknown]
  - Oesophageal disorder [Unknown]
  - Colon adenoma [Unknown]
  - Abdominal pain [Unknown]
  - Neuralgia [Unknown]
  - Insomnia [Unknown]
  - Abdominal distension [Unknown]
  - Fall [Unknown]
  - Vomiting [Unknown]
  - Wound [Unknown]
  - Oesophageal ulcer [Unknown]
  - Neurogenic bowel [Unknown]
  - Diplopia [Unknown]
  - Nausea [Unknown]
  - Asthma-chronic obstructive pulmonary disease overlap syndrome [Unknown]
  - Major depression [Unknown]
  - Neurogenic bladder [Unknown]
  - Pain in extremity [Unknown]
  - Urinary retention [Unknown]
  - Constipation [Unknown]
